FAERS Safety Report 6700868-X (Version None)
Quarter: 2010Q2

REPORT INFORMATION
  Report Type: 
  Country: None (occurrence: None)
  Receive Date: 20100428
  Receipt Date: 20100419
  Transmission Date: 20101027
  Serious: Yes (Death)
  Sender: FDA-Public Use
  Company Number: GB-PURDUE-DEU-2010-0005850

PATIENT
  Age: 97 Year
  Sex: Female

DRUGS (5)
  1. TRAMADOL HCL [Suspect]
     Indication: HOMICIDE
     Dosage: UNK
     Dates: start: 20070101
  2. OXYCODONE HYDROCHLORIDE [Suspect]
     Indication: HOMICIDE
  3. DIAZEPAM [Suspect]
     Indication: HOMICIDE
  4. LORAZEPAM [Suspect]
     Indication: HOMICIDE
  5. MIDAZOLAM HCL [Suspect]
     Indication: HOMICIDE

REACTIONS (2)
  - MULTIPLE DRUG OVERDOSE INTENTIONAL [None]
  - VICTIM OF HOMICIDE [None]
